FAERS Safety Report 15149928 (Version 1)
Quarter: 2018Q3

REPORT INFORMATION
  Report Type: Report from Study
  Country: BR (occurrence: BR)
  Receive Date: 20180716
  Receipt Date: 20180716
  Transmission Date: 20181010
  Serious: Yes (Hospitalization)
  Sender: FDA-Public Use
  Company Number: BR-ACTELION-A-CH2018-175356

PATIENT
  Age: 45 Year
  Sex: Female
  Weight: 43 kg

DRUGS (1)
  1. OPSUMIT [Suspect]
     Active Substance: MACITENTAN
     Indication: PULMONARY ARTERIAL HYPERTENSION
     Dosage: 10 MG, QD
     Route: 048
     Dates: start: 2017

REACTIONS (4)
  - Product supply issue [Unknown]
  - Vertigo [Unknown]
  - Fatigue [Unknown]
  - Dyspnoea [Unknown]
